FAERS Safety Report 25960964 (Version 2)
Quarter: 2025Q4

REPORT INFORMATION
  Report Type: Spontaneous
  Country: US (occurrence: US)
  Receive Date: 20251027
  Receipt Date: 20251028
  Transmission Date: 20260117
  Serious: Yes (Hospitalization, Other)
  Sender: SANDOZ
  Company Number: US-SANDOZ-SDZ2025US079421

PATIENT
  Age: 67 Year
  Sex: Male

DRUGS (2)
  1. NAFCILLIN SODIUM [Suspect]
     Active Substance: NAFCILLIN SODIUM
     Indication: Staphylococcal bacteraemia
     Dosage: UNK
     Route: 042
  2. RIFAMPIN [Suspect]
     Active Substance: RIFAMPIN
     Indication: Staphylococcal bacteraemia
     Dosage: UNK
     Route: 048

REACTIONS (1)
  - Hypokalaemia [Unknown]
